FAERS Safety Report 4550393-X (Version None)
Quarter: 2005Q1

REPORT INFORMATION
  Report Type: 
  Country: None (occurrence: None)
  Receive Date: 20050110
  Receipt Date: 20041227
  Transmission Date: 20050727
  Serious: Yes (Death, Hospitalization)
  Sender: FDA-Public Use
  Company Number: 200400711

PATIENT
  Age: 72 Year
  Sex: Male

DRUGS (11)
  1. VELCADE [Suspect]
     Indication: MULTIPLE MYELOMA
     Dosage: 1.30 MG/M2, IV BOLUS
     Route: 040
     Dates: start: 20021119
  2. CARAFATE [Concomitant]
  3. METOPROLOL TARTRATE [Concomitant]
  4. FOLIC ACID [Concomitant]
  5. ALDACTONE (SPIIRONOLACTONE) [Concomitant]
  6. PROCRIT (ERYTHROPOIETIN) [Concomitant]
  7. LOPRESSOR [Concomitant]
  8. MS CONTIN [Concomitant]
  9. MYLANTA (MAGNESIUM HYDROXIDE, SIMETICONE, ALUMINIUM HYDROXIDE GEL, DRI [Concomitant]
  10. ZOVIRAX [Concomitant]
  11. DECLOMYCIN [Concomitant]

REACTIONS (24)
  - ABDOMINAL DISTENSION [None]
  - ACTIVITIES OF DAILY LIVING IMPAIRED [None]
  - AUTONOMIC NEUROPATHY [None]
  - BLOOD CALCIUM DECREASED [None]
  - BLOOD SODIUM DECREASED [None]
  - BLOOD UREA INCREASED [None]
  - BOWEL SOUNDS ABNORMAL [None]
  - CARDIAC FAILURE CONGESTIVE [None]
  - CHEST PAIN [None]
  - CONSTIPATION [None]
  - CYANOSIS CENTRAL [None]
  - DRUG TOLERANCE DECREASED [None]
  - DRUG TOXICITY [None]
  - DYSPNOEA [None]
  - FATIGUE [None]
  - FLUID RETENTION [None]
  - GENERAL PHYSICAL HEALTH DETERIORATION [None]
  - ILEUS [None]
  - OEDEMA [None]
  - OEDEMA PERIPHERAL [None]
  - OXYGEN SATURATION DECREASED [None]
  - PANCYTOPENIA [None]
  - PO2 DECREASED [None]
  - RASH [None]
